FAERS Safety Report 7080952-4 (Version None)
Quarter: 2010Q4

REPORT INFORMATION
  Report Type: 
  Country: None (occurrence: None)
  Receive Date: 20101102
  Receipt Date: 20101102
  Transmission Date: 20110411
  Serious: Yes (Life-Threatening)
  Sender: FDA-Public Use
  Company Number: None

PATIENT
  Age: 50 Year
  Sex: Female
  Weight: 70.3075 kg

DRUGS (1)
  1. ISTALOL [Suspect]
     Indication: GLAUCOMA
     Dosage: ONE DROP INTO EACH EYE EVERY MORNING EYE (TOPICAL)
     Route: 061
     Dates: end: 20100903

REACTIONS (11)
  - ALOPECIA [None]
  - ANXIETY [None]
  - CHEST PAIN [None]
  - DIZZINESS [None]
  - DYSPEPSIA [None]
  - FATIGUE [None]
  - HEADACHE [None]
  - HYPERTENSION [None]
  - PALPITATIONS [None]
  - PYREXIA [None]
  - VISION BLURRED [None]
